FAERS Safety Report 5720158-1 (Version None)
Quarter: 2008Q2

REPORT INFORMATION
  Report Type: 
  Country: None (occurrence: None)
  Receive Date: 20080428
  Receipt Date: 20070524
  Transmission Date: 20081010
  Serious: No
  Sender: FDA-Public Use
  Company Number: US-AMGEN-US226221

PATIENT
  Sex: Male
  Weight: 85 kg

DRUGS (5)
  1. SENSIPAR [Suspect]
     Indication: HYPERPARATHYROIDISM SECONDARY
     Route: 065
     Dates: start: 20070201, end: 20070517
  2. NORVASC [Concomitant]
     Route: 065
  3. COREG [Concomitant]
     Route: 065
  4. LANTUS [Concomitant]
     Route: 065
  5. NOVOLOG [Concomitant]
     Route: 065

REACTIONS (2)
  - BLOOD CALCIUM DECREASED [None]
  - BLOOD PARATHYROID HORMONE DECREASED [None]
